FAERS Safety Report 6500452-7 (Version None)
Quarter: 2009Q4

REPORT INFORMATION
  Report Type: 
  Country: None (occurrence: None)
  Receive Date: 20091216
  Receipt Date: 20091207
  Transmission Date: 20100525
  Serious: Yes (Hospitalization)
  Sender: FDA-Public Use
  Company Number: US-BAYER-200942147NA

PATIENT
  Age: 51 Year
  Sex: Female
  Weight: 65 kg

DRUGS (6)
  1. SORAFENIB [Suspect]
     Indication: ADENOID CYSTIC CARCINOMA
     Dosage: TOTAL DAILY DOSE: 800 MG  UNIT DOSE: 200 MG
     Route: 048
     Dates: start: 20091022, end: 20091104
  2. SYNTHROID [Concomitant]
     Dosage: TOTAL DAILY DOSE: 200 ?G
  3. PRILOSEC [Concomitant]
  4. OXYCODONE [Concomitant]
  5. PHENERGAN HCL [Concomitant]
  6. IBUPROFEN [Concomitant]

REACTIONS (5)
  - DYSPHAGIA [None]
  - DYSPNOEA [None]
  - FEBRILE NEUTROPENIA [None]
  - PALMAR-PLANTAR ERYTHRODYSAESTHESIA SYNDROME [None]
  - RASH GENERALISED [None]
